FAERS Safety Report 12162150 (Version 1)
Quarter: 2016Q1

REPORT INFORMATION
  Report Type: Spontaneous
  Country: US (occurrence: None)
  Receive Date: 20160308
  Receipt Date: 20160308
  Transmission Date: 20160526
  Serious: Yes (Hospitalization)
  Sender: FDA-Public Use
  Company Number: None

PATIENT
  Age: 67 Year
  Sex: Female
  Weight: 91.6 kg

DRUGS (2)
  1. AMIODARONE [Concomitant]
     Active Substance: AMIODARONE
  2. LEVAQUIN [Suspect]
     Active Substance: LEVOFLOXACIN
     Indication: PNEUMONIA
     Dosage: RECENT

REACTIONS (4)
  - Electrocardiogram QT prolonged [None]
  - Ventricular fibrillation [None]
  - Procedural pneumothorax [None]
  - Cardiac arrest [None]

NARRATIVE: CASE EVENT DATE: 20150828
